FAERS Safety Report 24422779 (Version 3)
Quarter: 2024Q4

REPORT INFORMATION
  Report Type: Report from Study
  Country: US (occurrence: US)
  Receive Date: 20241010
  Receipt Date: 20241125
  Transmission Date: 20250115
  Serious: Yes (Other)
  Sender: NOVARTIS
  Company Number: US-002147023-NVSC2024US024756

PATIENT
  Sex: Female

DRUGS (4)
  1. KESIMPTA [Suspect]
     Active Substance: OFATUMUMAB
     Indication: Multiple sclerosis
     Dosage: 20 MG, QW (1ST INJECTION) (ONCE A WEEK FOR 3 WEEKS, SKIP 4TH WEEK, THEN ON 5TH WEEK START MONTHLY)
     Route: 058
     Dates: start: 20240202
  2. KESIMPTA [Suspect]
     Active Substance: OFATUMUMAB
     Dosage: 20 MG, QW (2ND INJECTION) (ONCE A WEEK FOR 3 WEEKS, SKIP 4TH WEEK, THEN ON 5TH WEEK START MONTHLY)
     Route: 065
  3. KESIMPTA [Suspect]
     Active Substance: OFATUMUMAB
     Dosage: 20 MG, QW (3RD INJECTION) (ONCE A WEEK FOR 3 WEEKS, SKIP 4TH WEEK, THEN ON 5TH WEEK START MONTHLY)
     Route: 065
  4. LITHIUM [Concomitant]
     Active Substance: LITHIUM
     Indication: Bipolar disorder
     Dosage: UNK
     Route: 065

REACTIONS (28)
  - Multiple sclerosis relapse [Unknown]
  - Multiple sclerosis pseudo relapse [Recovering/Resolving]
  - Visual impairment [Unknown]
  - Influenza [Recovered/Resolved]
  - Headache [Recovered/Resolved]
  - Fatigue [Recovered/Resolved]
  - Feeling abnormal [Recovered/Resolved]
  - Fatigue [Unknown]
  - Sleep disorder [Unknown]
  - Limb discomfort [Unknown]
  - Feeling abnormal [Unknown]
  - Eating disorder [Unknown]
  - Inflammation [Unknown]
  - Malaise [Recovering/Resolving]
  - Product preparation error [Unknown]
  - Muscle spasms [Unknown]
  - Muscular weakness [Unknown]
  - Gait disturbance [Unknown]
  - Menstruation delayed [Unknown]
  - Back pain [Unknown]
  - Premenstrual syndrome [Unknown]
  - Depression [Recovering/Resolving]
  - COVID-19 [Unknown]
  - Chills [Unknown]
  - Viral infection [Unknown]
  - Fall [Unknown]
  - Crying [Unknown]
  - Weight decreased [Unknown]
